FAERS Safety Report 16125046 (Version 2)
Quarter: 2019Q2

REPORT INFORMATION
  Report Type: Spontaneous
  Country: DE (occurrence: DE)
  Receive Date: 20190327
  Receipt Date: 20190401
  Transmission Date: 20190711
  Serious: Yes (Hospitalization, Other)
  Sender: FDA-Public Use
  Company Number: DE-009507513-98115639

PATIENT
  Sex: Male
  Weight: 13 kg

DRUGS (87)
  1. ZOFRAN [Concomitant]
     Active Substance: ONDANSETRON HYDROCHLORIDE
     Indication: VOMITING
     Dosage: 25 MILLILITER
     Route: 042
     Dates: start: 19961118, end: 19961119
  2. AMINO ACIDS (UNSPECIFIED) [Concomitant]
     Active Substance: AMINO ACIDS
     Dates: start: 19961126
  3. KONAKION [Concomitant]
     Active Substance: PHYTONADIONE
     Indication: VITAMIN K DEFICIENCY
     Route: 042
     Dates: start: 19961118, end: 19961210
  4. LASIX [Suspect]
     Active Substance: FUROSEMIDE
     Dosage: UNK
     Route: 042
     Dates: start: 19961201
  5. NOVALGIN (DIPYRONE) [Suspect]
     Active Substance: DIPYRONE
     Indication: PYREXIA
     Dosage: UNK
     Route: 042
     Dates: start: 19961120, end: 19961126
  6. MICRONEFRIN (RACEPINEPHRINE HYDROCHLORIDE) [Suspect]
     Active Substance: RACEPINEPHRINE HYDROCHLORIDE
     Indication: STRIDOR
     Route: 055
     Dates: start: 19961206, end: 19961206
  7. BERINERT [Suspect]
     Active Substance: HUMAN C1-ESTERASE INHIBITOR
     Indication: ANGIOEDEMA
     Route: 042
     Dates: start: 19961211
  8. ZOVIRAX [Suspect]
     Active Substance: ACYCLOVIR
     Indication: INFECTION
     Route: 042
     Dates: start: 19961127
  9. FORTUM [Suspect]
     Active Substance: CEFTAZIDIME
     Indication: UPPER RESPIRATORY TRACT INFECTION
     Route: 042
     Dates: start: 19961122, end: 19961130
  10. AMPHOTERICIN B. [Suspect]
     Active Substance: AMPHOTERICIN B
     Dosage: 40 MG, UNK
     Dates: start: 19961124
  11. COTRIM [Concomitant]
     Active Substance: SULFAMETHOXAZOLE\TRIMETHOPRIM
     Indication: INFECTION
     Route: 048
     Dates: start: 19961115, end: 19961115
  12. DEXAMETASON [Concomitant]
     Active Substance: DEXAMETHASONE
     Indication: IMMUNE SYSTEM DISORDER
     Route: 048
     Dates: end: 19961125
  13. INTRALIPID [Concomitant]
     Active Substance: EGG PHOSPHOLIPIDS\GLYCERIN\SOYBEAN OIL
     Indication: PARENTERAL NUTRITION
     Route: 042
     Dates: start: 19961127
  14. ZIENAM 500 [Suspect]
     Active Substance: CILASTATIN SODIUM\IMIPENEM
     Dosage: 200 MILLIGRAM
     Route: 042
     Dates: start: 19961201
  15. ACETAMINOPHEN. [Suspect]
     Active Substance: ACETAMINOPHEN
     Indication: PAIN
     Dosage: UNK
     Route: 042
     Dates: start: 19961120, end: 19961126
  16. ACETAMINOPHEN. [Suspect]
     Active Substance: ACETAMINOPHEN
     Dosage: UNK
     Route: 048
     Dates: start: 19961120, end: 19961120
  17. FENTANYL. [Suspect]
     Active Substance: FENTANYL
     Indication: SEDATION
     Route: 042
     Dates: start: 19961209
  18. URBASON [Suspect]
     Active Substance: METHYLPREDNISOLONE
     Dosage: 30 MILLIGRAM
     Route: 042
     Dates: start: 19961206, end: 19961206
  19. DIFLUCAN [Suspect]
     Active Substance: FLUCONAZOLE
     Indication: CANDIDA INFECTION
     Dosage: DOSE : 1
     Route: 048
     Dates: start: 19961117, end: 19961125
  20. TAVEGIL [Concomitant]
     Active Substance: CLEMASTINE FUMARATE
     Indication: HYPERSENSITIVITY
     Route: 042
     Dates: start: 19961123, end: 19961125
  21. DEXTROSE. [Concomitant]
     Active Substance: DEXTROSE
     Indication: HYPOGLYCAEMIA
     Route: 042
     Dates: start: 19961116
  22. URBASON [Suspect]
     Active Substance: METHYLPREDNISOLONE
     Indication: IMMUNE SYSTEM DISORDER
     Dosage: 30 MILLIGRAM
     Route: 042
     Dates: start: 19961211
  23. MORPHINE HYDROCHLORIDE [Suspect]
     Active Substance: MORPHINE HYDROCHLORIDE
     Indication: PAIN
     Dosage: UNK
     Route: 042
     Dates: start: 19961130, end: 19961205
  24. EDECRIN [Suspect]
     Active Substance: ETHACRYNIC ACID
     Indication: OEDEMA
     Dosage: 10 MG, TID
     Route: 042
     Dates: start: 19961212
  25. PHENHYDAN [Suspect]
     Active Substance: PHENYTOIN
     Indication: SEIZURE PROPHYLAXIS
     Dosage: UNK
     Route: 048
     Dates: start: 19961114, end: 19961124
  26. PROSTAVASIN [Suspect]
     Active Substance: ALPROSTADIL ALFADEX
     Dosage: 100 MILLIGRAM
     Route: 042
     Dates: start: 19961201, end: 19961201
  27. TOBRAMYCIN. [Suspect]
     Active Substance: TOBRAMYCIN
     Indication: UPPER RESPIRATORY TRACT INFECTION
     Dosage: UNK
     Route: 042
     Dates: start: 19961124
  28. ACETYLCYSTEINE. [Suspect]
     Active Substance: ACETYLCYSTEINE
     Dosage: UNK
     Route: 042
     Dates: start: 19961207
  29. ALPROSTADIL. [Suspect]
     Active Substance: ALPROSTADIL
     Route: 042
     Dates: start: 19961201
  30. CANDIO-HERMAL [Concomitant]
     Active Substance: NYSTATIN
     Indication: CANDIDA INFECTION
     Dosage: 4 MILLILITER, QD
     Route: 048
     Dates: start: 19961119, end: 19961210
  31. OTRIVEN [Concomitant]
     Active Substance: XYLOMETAZOLINE HYDROCHLORIDE
     Indication: DYSPNOEA
     Dosage: UNK
     Route: 050
     Dates: start: 19961120, end: 19961120
  32. GLUTAMIC ACID HYDROCHLORIDE [Concomitant]
     Active Substance: GLUTAMIC ACID HYDROCHLORIDE
     Route: 042
     Dates: start: 19961201
  33. KALINOR [Concomitant]
     Indication: HYPOKALAEMIA
     Route: 048
     Dates: start: 19961119, end: 19961120
  34. VANCOMYCIN [Concomitant]
     Active Substance: VANCOMYCIN
     Indication: UPPER RESPIRATORY TRACT INFECTION
     Route: 042
     Dates: start: 19961122
  35. UROMITEXAN [Concomitant]
     Active Substance: MESNA
     Indication: BONE MARROW TRANSPLANT
     Dosage: DOSE: 1404 MILLIGRAM
     Route: 042
     Dates: start: 19961123, end: 19961124
  36. SANDIMMUN [Concomitant]
     Active Substance: CYCLOSPORINE
     Indication: IMMUNE SYSTEM DISORDER
     Route: 048
     Dates: start: 19961115, end: 19961115
  37. SOLUVIT [Suspect]
     Active Substance: VITAMINS
     Indication: HYPOVITAMINOSIS
     Route: 042
     Dates: start: 19961126
  38. TRIGLOBE [Suspect]
     Active Substance: SULFADIAZINE\TRIMETHOPRIM
     Dosage: UNK
     Route: 048
     Dates: start: 19961122, end: 19961127
  39. GRANULOCYTE COLONY STIMULATING FACTOR (UNSPECIFIED) [Suspect]
     Active Substance: FILGRASTIM
     Indication: IMMUNE SYSTEM DISORDER
     Dosage: DOSE : 1
     Route: 042
     Dates: start: 19961125
  40. ALDACTONE (CANRENOATE POTASSIUM) [Suspect]
     Active Substance: CANRENOATE POTASSIUM
     Indication: ASCITES
     Route: 042
     Dates: start: 19961204
  41. LUMINAL [Suspect]
     Active Substance: PHENOBARBITAL SODIUM
     Indication: SEIZURE PROPHYLAXIS
     Dosage: UNK
     Route: 042
     Dates: start: 19961209
  42. FILGRASTIM [Suspect]
     Active Substance: FILGRASTIM
     Indication: BONE MARROW TRANSPLANT
     Dosage: UNK
     Route: 042
     Dates: start: 19961125
  43. AMPHO MORONAL [Concomitant]
     Active Substance: AMPHOTERICIN B
     Indication: FUNGAL INFECTION
     Route: 048
     Dates: start: 19961115, end: 19961115
  44. ANTILYMPHOCYTE IMMUNOGLOBULIN [Concomitant]
     Active Substance: THYMOCYTE IMMUNE GLOBULIN NOS
     Indication: BONE MARROW TRANSPLANT
     Route: 042
     Dates: start: 19961123, end: 19961125
  45. DOPAMINE HYDROCHLORIDE. [Suspect]
     Active Substance: DOPAMINE HYDROCHLORIDE
     Indication: ACUTE KIDNEY INJURY
     Dosage: 200 MILLIGRAM
     Route: 042
     Dates: start: 19961210
  46. LASIX [Suspect]
     Active Substance: FUROSEMIDE
     Dosage: UNK
     Route: 042
     Dates: start: 19961128, end: 19961128
  47. VP-16 [Suspect]
     Active Substance: ETOPOSIDE
     Indication: IMMUNE SYSTEM DISORDER
     Dosage: UNK
     Route: 042
     Dates: start: 19961122, end: 19961122
  48. PENTAGLOBIN [Suspect]
     Active Substance: HUMAN IMMUNOGLOBULIN G
     Dosage: DOSE : 1
     Route: 042
     Dates: start: 19961129, end: 19961129
  49. VITINTRA [Suspect]
     Active Substance: ERGOCALCIFEROL\PHYTONADIONE\RETINOL\VITAMIN A PALMITATE
     Indication: HYPOVITAMINOSIS
     Dosage: UNK
     Route: 042
     Dates: start: 19961127
  50. MICRONEFRIN (RACEPINEPHRINE HYDROCHLORIDE) [Suspect]
     Active Substance: RACEPINEPHRINE HYDROCHLORIDE
     Dosage: UNK
     Dates: start: 19961206
  51. BACTRIM [Suspect]
     Active Substance: SULFAMETHOXAZOLE\TRIMETHOPRIM
     Indication: ANTIBIOTIC THERAPY
     Dosage: UNK
     Route: 042
     Dates: start: 19961129
  52. ACETYLCYSTEINE. [Suspect]
     Active Substance: ACETYLCYSTEINE
     Indication: UNEVALUABLE EVENT
     Dosage: UNK
     Route: 042
     Dates: start: 19961130, end: 19961130
  53. SPIRONOLACTONE. [Suspect]
     Active Substance: SPIRONOLACTONE
     Dates: start: 19961204
  54. METHOTREXATE (METHOTREXATE SODIUM) [Suspect]
     Active Substance: METHOTREXATE SODIUM
     Route: 042
     Dates: start: 19961127, end: 19961129
  55. TROPHICARD [Concomitant]
     Active Substance: MAGNESIUM ASPARTATE\POTASSIUM ASPARTATE
     Indication: ARRHYTHMIA
     Route: 042
     Dates: start: 19961207, end: 19961207
  56. ENDOXAN [Concomitant]
     Active Substance: CYCLOPHOSPHAMIDE
     Indication: BONE MARROW TRANSPLANT
     Route: 042
     Dates: start: 19961123, end: 19961124
  57. CLONT [Concomitant]
     Indication: ANTIBIOTIC THERAPY
     Route: 042
     Dates: start: 19961118
  58. SANDIMMUN [Concomitant]
     Active Substance: CYCLOSPORINE
     Indication: IMMUNE SYSTEM DISORDER
     Route: 042
     Dates: start: 19961116
  59. ZIENAM 500 [Suspect]
     Active Substance: CILASTATIN SODIUM\IMIPENEM
     Indication: ANTIBIOTIC THERAPY
     Dosage: 200 MG, QID
     Route: 042
     Dates: start: 19961201
  60. LASIX [Suspect]
     Active Substance: FUROSEMIDE
     Indication: OEDEMA
     Dosage: UNK
     Route: 042
     Dates: start: 19961124, end: 19961126
  61. URBASON [Suspect]
     Active Substance: METHYLPREDNISOLONE
     Dosage: 30 MILLIGRAM
     Route: 042
     Dates: start: 19961124, end: 19961124
  62. PENTAGLOBIN [Suspect]
     Active Substance: HUMAN IMMUNOGLOBULIN G
     Indication: IMMUNOGLOBULINS ABNORMAL
     Dosage: DOSE : 1
     Route: 042
     Dates: start: 19961202, end: 19961202
  63. PENTAGLOBIN [Suspect]
     Active Substance: HUMAN IMMUNOGLOBULIN G
     Dosage: DOSE : 1
     Route: 042
     Dates: start: 19961127, end: 19961127
  64. MORPHINE HYDROCHLORIDE [Suspect]
     Active Substance: MORPHINE HYDROCHLORIDE
     Dosage: UNK
     Route: 042
     Dates: start: 19961207, end: 19961209
  65. PROSTAVASIN [Suspect]
     Active Substance: ALPROSTADIL ALFADEX
     Indication: VASCULAR OCCLUSION
     Route: 042
     Dates: start: 19961205
  66. PANCURONIUM BROMIDE. [Suspect]
     Active Substance: PANCURONIUM BROMIDE
     Indication: MUSCLE RELAXANT THERAPY
     Route: 042
     Dates: start: 19961213, end: 19961213
  67. MIDAZOLAM [Suspect]
     Active Substance: MIDAZOLAM HYDROCHLORIDE
     Indication: SEDATION
     Dosage: UNK
     Route: 042
     Dates: start: 19961209
  68. ACYCLOVIR. [Suspect]
     Active Substance: ACYCLOVIR
     Dosage: UNK
     Route: 042
     Dates: start: 19961127
  69. SODIUM CHLORIDE. [Concomitant]
     Active Substance: SODIUM CHLORIDE
     Route: 042
     Dates: start: 19961116, end: 19961125
  70. CIPROBAY (CIPROFLOXACIN) [Concomitant]
     Active Substance: CIPROFLOXACIN
     Indication: ANTIBIOTIC THERAPY
     Route: 042
     Dates: start: 19961116, end: 19961121
  71. FORTECORTIN (DEXAMETHASONE) [Concomitant]
     Active Substance: DEXAMETHASONE
     Indication: IMMUNE SYSTEM DISORDER
     Route: 042
     Dates: start: 19961118, end: 19961123
  72. NEUPOGEN [Suspect]
     Active Substance: FILGRASTIM
     Indication: BONE MARROW TRANSPLANT
     Dosage: UNK
     Route: 042
     Dates: start: 19961125
  73. ACETAMINOPHEN. [Suspect]
     Active Substance: ACETAMINOPHEN
     Dosage: UNK
     Route: 048
     Dates: start: 19961122, end: 19961126
  74. TRIGLOBE [Suspect]
     Active Substance: SULFADIAZINE\TRIMETHOPRIM
     Indication: ANTIBIOTIC THERAPY
     Dosage: UNK
     Route: 048
     Dates: start: 19961116, end: 19961116
  75. PENTAGLOBIN [Suspect]
     Active Substance: HUMAN IMMUNOGLOBULIN G
     Dosage: DOSE : 1
     Route: 042
     Dates: start: 19961210, end: 19961210
  76. AMBISOME [Suspect]
     Active Substance: AMPHOTERICIN B
     Indication: UPPER RESPIRATORY TRACT INFECTION
     Dosage: DOSE : 1
     Route: 042
     Dates: start: 19961124
  77. HYDROMEDIN [Suspect]
     Active Substance: ETHACRYNIC ACID
     Indication: OEDEMA
     Dosage: 30 MILLIGRAM
     Route: 042
     Dates: start: 19961212
  78. SOBELIN (CLINDAMYCIN) [Suspect]
     Active Substance: CLINDAMYCIN
     Indication: SOFT TISSUE DISORDER
     Dosage: UNK
     Route: 042
     Dates: start: 19961203
  79. INZOLEN [Concomitant]
     Active Substance: MAGNESIUM ASPARTATE\POTASSIUM ASPARTATE
     Indication: MINERAL DEFICIENCY
     Dosage: UNK
     Route: 042
     Dates: start: 19961126
  80. NAVOBAN [Concomitant]
     Active Substance: TROPISETRON HYDROCHLORIDE
     Indication: VOMITING
     Route: 042
     Dates: start: 19961120, end: 19961128
  81. DEXTROSE. [Concomitant]
     Active Substance: DEXTROSE
     Indication: HYPOGLYCAEMIA
     Route: 042
     Dates: start: 19961126
  82. MYLERAN [Concomitant]
     Active Substance: BUSULFAN
     Indication: BONE MARROW TRANSPLANT
     Route: 048
     Dates: start: 19961118, end: 19961121
  83. MUCOSOLVAN [Suspect]
     Active Substance: AMBROXOL HYDROCHLORIDE
     Indication: UNEVALUABLE EVENT
     Dosage: DOSE: 3
     Route: 042
     Dates: start: 19961211
  84. ZANTAC [Suspect]
     Active Substance: RANITIDINE HYDROCHLORIDE
     Indication: PROPHYLAXIS
     Dosage: UNK
     Route: 042
     Dates: start: 19961210, end: 19961211
  85. METHOTREXATE. [Suspect]
     Active Substance: METHOTREXATE
     Indication: IMMUNE SYSTEM DISORDER
     Route: 042
     Dates: start: 19961129, end: 19961129
  86. METHOTREXATE. [Suspect]
     Active Substance: METHOTREXATE
     Dosage: UNK
     Route: 042
     Dates: start: 19961127, end: 19961127
  87. ARTERENOL [Suspect]
     Active Substance: NOREPINEPHRINE HYDROCHLORIDE, (+/-)-
     Indication: SHOCK
     Dosage: UNK
     Route: 042
     Dates: start: 19961210

REACTIONS (10)
  - Respiratory disorder [Unknown]
  - Upper respiratory tract infection [None]
  - Stevens-Johnson syndrome [Recovering/Resolving]
  - Stridor [Unknown]
  - Acute kidney injury [Recovering/Resolving]
  - Mouth haemorrhage [None]
  - Angioedema [Unknown]
  - Stomatitis [Unknown]
  - Ascites [Unknown]
  - Obstructive airways disorder [Unknown]

NARRATIVE: CASE EVENT DATE: 19961201
